FAERS Safety Report 25761740 (Version 1)
Quarter: 2025Q3

REPORT INFORMATION
  Report Type: Spontaneous
  Country: EU (occurrence: EU)
  Receive Date: 20250904
  Receipt Date: 20250904
  Transmission Date: 20251021
  Serious: Yes (Disabling)
  Sender: JUBILANT
  Company Number: None

PATIENT

DRUGS (1)
  1. OLANZAPINE [Suspect]
     Active Substance: OLANZAPINE
     Indication: Drug dependence
     Dosage: 15 MG, ONCE PER DAY
     Route: 048
     Dates: start: 20210101

REACTIONS (1)
  - Incontinence [Not Recovered/Not Resolved]
